FAERS Safety Report 6822756-0 (Version None)
Quarter: 2010Q3

REPORT INFORMATION
  Report Type: 
  Country: None (occurrence: None)
  Receive Date: 20100708
  Receipt Date: 20100628
  Transmission Date: 20110219
  Serious: Yes (Other)
  Sender: FDA-Public Use
  Company Number: PT-ROCHE-699980

PATIENT
  Sex: Female
  Weight: 59 kg

DRUGS (13)
  1. BEVACIZUMAB [Suspect]
     Indication: COLORECTAL CANCER
     Dosage: OVER 30-90 MINUTES
     Route: 042
     Dates: start: 20100125, end: 20100308
  2. BEVACIZUMAB [Suspect]
     Route: 042
     Dates: start: 20100329
  3. FLUOROURACIL [Suspect]
     Indication: COLORECTAL CANCER
     Dosage: ON EVERY DAY 01. FOLLOWED BY 2400 MG/M2
     Route: 042
     Dates: start: 20100125
  4. FLUOROURACIL [Suspect]
     Dosage: OVER 46-48 HOURS.
     Route: 042
     Dates: end: 20100308
  5. OXALIPLATIN [Suspect]
     Indication: COLORECTAL CANCER
     Dosage: ON DAY 01 OF EVERY 14 DAYS CYCLE.
     Route: 042
     Dates: start: 20100125, end: 20100308
  6. FOLINIC ACID [Suspect]
     Indication: COLORECTAL CANCER
     Route: 042
     Dates: start: 20100125, end: 20100308
  7. FOLINIC ACID [Suspect]
     Route: 042
     Dates: start: 20100329
  8. ACETAMINOPHEN [Concomitant]
     Dates: start: 20100131, end: 20100131
  9. DRILL [Concomitant]
     Dosage: FORM: PILL
     Dates: start: 20100131, end: 20100131
  10. ALLOPURINOL [Concomitant]
     Dates: start: 20100201
  11. ALBUTEROL [Concomitant]
     Indication: BRONCHOSPASM
     Dates: start: 20100201, end: 20100203
  12. LOPERAMIDE HYDROCHLORIDE [Concomitant]
     Dates: start: 20100301
  13. ALTIZIDE/SPIRONOLACTONE [Concomitant]
     Dosage: DOSE REPORTED AS: 15MG+25 MG
     Dates: start: 20100201, end: 20100201

REACTIONS (3)
  - BLOOD CREATININE INCREASED [None]
  - DEHYDRATION [None]
  - DIARRHOEA [None]
